FAERS Safety Report 5097780-1 (Version None)
Quarter: 2006Q3

REPORT INFORMATION
  Report Type: 
  Country: None (occurrence: None)
  Receive Date: 20060901
  Receipt Date: 20020117
  Transmission Date: 20061208
  Serious: Yes (Hospitalization)
  Sender: FDA-Public Use
  Company Number: WAES 0201USA01866

PATIENT
  Age: 51 Year
  Sex: Male

DRUGS (19)
  1. CRIXIVAN [Suspect]
     Dosage: 800 MG/BID/PO
     Route: 048
     Dates: start: 20011108, end: 20011126
  2. TENOFOVIR [Suspect]
     Dates: start: 20011108, end: 20011126
  3. SUSTIVA [Suspect]
     Dosage: 600 MG/DAILY/PO
     Route: 048
     Dates: start: 20011108, end: 20011126
  4. RITONAVIR [Suspect]
     Dosage: 100 MG/BID
     Dates: start: 20011108, end: 20011126
  5. ZERIT [Suspect]
     Dosage: 40 MG/BID
     Dates: start: 20001229
  6. BECONASE [Concomitant]
  7. CYTOVENE CAPSULES [Concomitant]
  8. DIFLUCAN [Concomitant]
  9. MEGACE [Concomitant]
  10. NEBUPENT [Concomitant]
  11. NEURONTIN [Concomitant]
  12. ORAMORPH SR [Concomitant]
  13. PROZAC [Concomitant]
  14. ZITHROMAX [Concomitant]
  15. ACYCLOVIR [Concomitant]
  16. LOPERAMIDE HYDROCHLORIDE [Concomitant]
  17. LORAZEPAM [Concomitant]
  18. MORPHINE SULFATE [Concomitant]
  19. TRAZODONE HCL [Concomitant]

REACTIONS (22)
  - ABDOMINAL DISTENSION [None]
  - ABDOMINAL PAIN LOWER [None]
  - ASPARTATE AMINOTRANSFERASE INCREASED [None]
  - BLOOD ALKALINE PHOSPHATASE INCREASED [None]
  - BLOOD BILIRUBIN INCREASED [None]
  - BLOOD LACTATE DEHYDROGENASE INCREASED [None]
  - BOWEL SOUNDS ABNORMAL [None]
  - CARBON DIOXIDE DECREASED [None]
  - DEHYDRATION [None]
  - DYSPNOEA [None]
  - EXCORIATION [None]
  - FATIGUE [None]
  - GALLBLADDER DISORDER [None]
  - HAEMATOCRIT DECREASED [None]
  - HYPOTENSION [None]
  - LYMPHADENOPATHY [None]
  - PAIN [None]
  - RALES [None]
  - RASH [None]
  - RENAL FAILURE ACUTE [None]
  - SYSTEMIC INFLAMMATORY RESPONSE SYNDROME [None]
  - VERTIGO [None]
